FAERS Safety Report 8903575 (Version 2)
Quarter: 2013Q1

REPORT INFORMATION
  Report Type: Report from Study
  Country: JP (occurrence: JP)
  Receive Date: 20121113
  Receipt Date: 20130219
  Transmission Date: 20140127
  Serious: Yes (Other)
  Sender: FDA-Public Use
  Company Number: JP-CELGENEUS-087-21880-11063948

PATIENT
  Age: 73 Year
  Sex: Male

DRUGS (22)
  1. REVLIMID [Suspect]
     Indication: 5Q MINUS SYNDROME
     Dosage: 5 MILLIGRAM
     Route: 048
     Dates: start: 20101012, end: 20101101
  2. REVLIMID [Suspect]
     Dosage: 5 MILLIGRAM
     Route: 048
     Dates: start: 20101109, end: 20101130
  3. REVLIMID [Suspect]
     Dosage: 5 MILLIGRAM
     Route: 048
     Dates: start: 20101207, end: 20101227
  4. REVLIMID [Suspect]
     Dosage: 5 MILLIGRAM
     Route: 048
     Dates: start: 20110104, end: 20110124
  5. REVLIMID [Suspect]
     Dosage: 5 MILLIGRAM
     Route: 048
     Dates: start: 20110201, end: 20110221
  6. REVLIMID [Suspect]
     Dosage: 5 MILLIGRAM
     Route: 048
     Dates: start: 20110301, end: 20110322
  7. MARZULENE-S [Concomitant]
     Indication: PRODUCT USED FOR UNKNOWN INDICATION
     Dosage: 1.5 GRAM
     Route: 048
     Dates: start: 20101012, end: 20101107
  8. REBAMIPIDE [Concomitant]
     Indication: PRODUCT USED FOR UNKNOWN INDICATION
     Dosage: 300 MILLIGRAM
     Route: 048
     Dates: start: 20101012, end: 20101107
  9. GLAKAY [Concomitant]
     Indication: ILL-DEFINED DISORDER
     Dosage: 45 MILLIGRAM
     Route: 048
     Dates: start: 20101012, end: 20101107
  10. GLAKAY [Concomitant]
     Dosage: 45 MILLIGRAM
     Route: 048
     Dates: start: 20101109, end: 20110329
  11. PRIMOBOLAN [Concomitant]
     Indication: ILL-DEFINED DISORDER
     Dosage: 30 MILLIGRAM
     Route: 048
     Dates: start: 20101012, end: 20101107
  12. PRIMOBOLAN [Concomitant]
     Dosage: 30 MILLIGRAM
     Route: 048
     Dates: start: 20101109, end: 20110329
  13. JUZEN-TAIHO-TO [Concomitant]
     Indication: ILL-DEFINED DISORDER
     Dosage: 7.5 GRAM
     Route: 048
     Dates: start: 20101012, end: 20101107
  14. FLUCONAZOLE [Concomitant]
     Indication: PRODUCT USED FOR UNKNOWN INDICATION
     Dosage: 200 MILLIGRAM
     Route: 048
     Dates: start: 20101012, end: 20101107
  15. FLUCONAZOLE [Concomitant]
     Indication: PROPHYLAXIS
     Dosage: 100 MILLIGRAM
     Route: 048
     Dates: start: 20101109, end: 20110103
  16. FLUCONAZOLE [Concomitant]
     Dosage: 200 MILLIGRAM
     Route: 048
     Dates: start: 20110104, end: 20110329
  17. CLARITH [Concomitant]
     Indication: PROPHYLAXIS
     Dosage: 400 MILLIGRAM
     Route: 048
     Dates: start: 20101109, end: 20101130
  18. CLARITH [Concomitant]
     Dosage: 400 MILLIGRAM
     Route: 048
     Dates: start: 20101210, end: 20110321
  19. RANITAC [Concomitant]
     Indication: PRODUCT USED FOR UNKNOWN INDICATION
     Dosage: 300 MILLIGRAM
     Route: 048
     Dates: start: 20101109, end: 20101130
  20. RANITAC [Concomitant]
     Dosage: 300 MILLIGRAM
     Route: 048
     Dates: start: 20110104, end: 20110329
  21. PAXIL [Concomitant]
     Indication: PRODUCT USED FOR UNKNOWN INDICATION
     Dosage: 10 MILLIGRAM
     Route: 048
     Dates: start: 20101109, end: 20110329
  22. EXJADE [Concomitant]
     Indication: ILL-DEFINED DISORDER
     Dosage: 1000 MILLIGRAM
     Route: 048
     Dates: start: 20110301, end: 20110321

REACTIONS (3)
  - Sudden hearing loss [Not Recovered/Not Resolved]
  - White blood cell count decreased [Not Recovered/Not Resolved]
  - Neutrophil count decreased [Not Recovered/Not Resolved]
